FAERS Safety Report 13805386 (Version 1)
Quarter: 2017Q3

REPORT INFORMATION
  Report Type: Spontaneous
  Country: US (occurrence: US)
  Receive Date: 20170728
  Receipt Date: 20170728
  Transmission Date: 20171127
  Serious: Yes (Hospitalization)
  Sender: FDA-Public Use
  Company Number: None

PATIENT
  Age: 74 Year
  Sex: Male
  Weight: 90.5 kg

DRUGS (1)
  1. PAZOPANIB (GW786034) [Suspect]
     Active Substance: PAZOPANIB
     Dates: end: 20170713

REACTIONS (4)
  - Constipation [None]
  - Spinal cord compression [None]
  - Therapy cessation [None]
  - Cardiac failure congestive [None]

NARRATIVE: CASE EVENT DATE: 20170714
